FAERS Safety Report 10278400 (Version 2)
Quarter: 2014Q3

REPORT INFORMATION
  Report Type: Spontaneous
  Country: US (occurrence: US)
  Receive Date: 20140704
  Receipt Date: 20140805
  Transmission Date: 20150326
  Serious: Yes (Other)
  Sender: FDA-Public Use
  Company Number: US-009507513-1406USA013930

PATIENT
  Age: 21 Year
  Sex: Female

DRUGS (3)
  1. METOPROLOL SUCCINATE. [Concomitant]
     Active Substance: METOPROLOL SUCCINATE
     Dosage: UNK
  2. NEXPLANON [Suspect]
     Active Substance: ETONOGESTREL
     Indication: CONTRACEPTION
     Dosage: 1 ROD FOR THREE YEARS, IN LEFT ARM
     Route: 059
     Dates: start: 20140520
  3. ZANTAC [Concomitant]
     Active Substance: RANITIDINE HYDROCHLORIDE
     Dosage: UNK

REACTIONS (9)
  - Heart rate increased [Unknown]
  - Device expulsion [Unknown]
  - Fatigue [Unknown]
  - Myocardial infarction [Unknown]
  - Increased tendency to bruise [Unknown]
  - Medical device complication [Unknown]
  - Dizziness [Unknown]
  - Depression [Unknown]
  - Implant site scar [Unknown]

NARRATIVE: CASE EVENT DATE: 2014
